FAERS Safety Report 5068660-2 (Version None)
Quarter: 2006Q3

REPORT INFORMATION
  Report Type: 
  Country: None (occurrence: None)
  Receive Date: 20060802
  Receipt Date: 20060131
  Transmission Date: 20061208
  Serious: Yes (Hospitalization, Other)
  Sender: FDA-Public Use
  Company Number: US-BRISTOL-MYERS SQUIBB COMPANY-13265111

PATIENT
  Age: 67 Year
  Sex: Male
  Weight: 80 kg

DRUGS (7)
  1. WARFARIN SODIUM [Suspect]
     Indication: HEART VALVE REPLACEMENT
  2. ALTACE [Concomitant]
  3. TRICOR [Concomitant]
  4. TOPROL-XL [Concomitant]
  5. ZOCOR [Concomitant]
  6. FLOMAX [Concomitant]
  7. ASPIRIN [Concomitant]

REACTIONS (2)
  - INTERNATIONAL NORMALISED RATIO FLUCTUATION [None]
  - TRANSIENT ISCHAEMIC ATTACK [None]
